FAERS Safety Report 7277258-7 (Version None)
Quarter: 2011Q1

REPORT INFORMATION
  Report Type: 
  Country: None (occurrence: None)
  Receive Date: 20110202
  Receipt Date: 20110202
  Transmission Date: 20110831
  Serious: No
  Sender: FDA-Public Use
  Company Number: None

PATIENT
  Age: 74 Year
  Sex: Female
  Weight: 63.5036 kg

DRUGS (2)
  1. ALLOPURINOL [Concomitant]
  2. COLCHRYS 0.6 MG DAILY MUTUAL PHARMACEUTICAL [Suspect]
     Indication: GOUT
     Dosage: 0.6 MG DAILY PO
     Route: 048
     Dates: start: 20110129, end: 20110129

REACTIONS (4)
  - PRODUCT SUBSTITUTION ISSUE [None]
  - NAUSEA [None]
  - MALAISE [None]
  - VOMITING [None]
